FAERS Safety Report 12806196 (Version 1)
Quarter: 2016Q4

REPORT INFORMATION
  Report Type: Spontaneous
  Country: US (occurrence: US)
  Receive Date: 20161004
  Receipt Date: 20161004
  Transmission Date: 20170207
  Serious: No
  Sender: FDA-Public Use
  Company Number: None

PATIENT
  Age: 31 Year
  Sex: Male

DRUGS (1)
  1. TESTOPEL [Suspect]
     Active Substance: TESTOSTERONE
     Indication: SECONDARY HYPOGONADISM
     Dosage: 12 PELLETS EVERY 4 MONTHS
     Route: 058
     Dates: start: 20150309

REACTIONS (4)
  - Mood altered [None]
  - Testicular disorder [None]
  - Fatigue [None]
  - Pain [None]

NARRATIVE: CASE EVENT DATE: 201609
